FAERS Safety Report 9737096 (Version 1)
Quarter: 2013Q4

REPORT INFORMATION
  Report Type: Spontaneous
  Country: ES (occurrence: ES)
  Receive Date: 20131206
  Receipt Date: 20131206
  Transmission Date: 20140711
  Serious: Yes (Other)
  Sender: FDA-Public Use
  Company Number: ES-OTSUKA-EU-2013-10308

PATIENT
  Sex: 0

DRUGS (4)
  1. PLETAL [Suspect]
     Indication: INTERMITTENT CLAUDICATION
     Dosage: 100 MG MILLIGRAM(S), BID
     Route: 048
     Dates: start: 20110720, end: 20120216
  2. OMEPRAZOL [Concomitant]
     Dosage: 1 DF DOSAGE FORM, DAILY DOSE
     Route: 065
  3. ADIRO [Concomitant]
     Dosage: 1 DF DOSAGE FORM, DAILY DOSE
     Route: 065
  4. HYDROCHLOROTHIAZIDE W/TELMISARTAN [Concomitant]
     Dosage: 1 DF DOSAGE FORM, DAILY DOSE
     Route: 065

REACTIONS (3)
  - Extrasystoles [Recovered/Resolved]
  - Blood creatine phosphokinase increased [Recovered/Resolved]
  - Palpitations [Recovered/Resolved]
